FAERS Safety Report 5672744-5 (Version None)
Quarter: 2008Q1

REPORT INFORMATION
  Report Type: 
  Country: None (occurrence: None)
  Receive Date: 20080319
  Receipt Date: 20070531
  Transmission Date: 20080703
  Serious: No
  Sender: FDA-Public Use
  Company Number: US-KINGPHARMUSA00001-K200700671

PATIENT

DRUGS (7)
  1. ALTACE [Suspect]
     Indication: MYOCARDIAL INFARCTION
     Dosage: 2.5 MG, BID
     Route: 048
     Dates: start: 20070101
  2. TOPROL-XL [Concomitant]
     Indication: CARDIAC DISORDER
  3. PLAVIX [Concomitant]
  4. ASPIRIN [Concomitant]
     Dosage: 325 MG, QD
  5. LIPITOR [Concomitant]
     Dosage: 40 MG, UNK
  6. OMACOR                             /01403701/ [Concomitant]
     Indication: MEDICAL DIET
  7. NIACIN [Concomitant]
     Indication: HIGH DENSITY LIPOPROTEIN DECREASED

REACTIONS (1)
  - COUGH [None]
